FAERS Safety Report 10072538 (Version 1)
Quarter: 2014Q2

REPORT INFORMATION
  Report Type: Spontaneous
  Country: US (occurrence: None)
  Receive Date: 20140409
  Receipt Date: 20140409
  Transmission Date: 20141212
  Serious: Yes (Hospitalization)
  Sender: FDA-Public Use
  Company Number: IPC201403-000147

PATIENT
  Age: 55 Year
  Sex: Male

DRUGS (15)
  1. GABAPENTIN [Suspect]
     Indication: NEURALGIA
  2. METOPROLOL TARTRATE [Suspect]
  3. AMLODIPINE BESILATE [Suspect]
  4. CLOPIDOGREL [Suspect]
  5. HYDRALAZINE [Suspect]
  6. CLONIDINE [Suspect]
  7. ATORVASTATIN [Suspect]
  8. OXYCODONE [Suspect]
  9. HYDROMORPHONE [Suspect]
  10. SEVELAMER [Suspect]
  11. LANTHANUM [Suspect]
  12. EPOETIN [Suspect]
  13. INSULIN GLARGINE [Suspect]
  14. VANCOMYCIN [Suspect]
  15. PIPERACILLIN/TAZOBACTUM [Suspect]

REACTIONS (9)
  - Myoclonus [None]
  - Lethargy [None]
  - Confusional state [None]
  - Mental status changes [None]
  - Hypotension [None]
  - Localised infection [None]
  - Condition aggravated [None]
  - Tremor [None]
  - Blood creatinine increased [None]
